FAERS Safety Report 4501590-0 (Version None)
Quarter: 2004Q3

REPORT INFORMATION
  Report Type: 
  Country: None (occurrence: None)
  Receive Date: 20040928
  Receipt Date: 20040831
  Transmission Date: 20050211
  Serious: No
  Sender: FDA-Public Use
  Company Number: 04P-163-0271970-00

PATIENT
  Age: 64 Year
  Sex: Female
  Weight: 66.2252 kg

DRUGS (7)
  1. HUMIRA [Suspect]
     Indication: RHEUMATOID ARTHRITIS
     Dosage: 40 MG 1 IN 2 WK SUBCUTANEOUS
     Route: 058
     Dates: start: 20040101
  2. SERTRALINE HYDROCHLORIDE [Concomitant]
  3. DIOVAN [Concomitant]
  4. HYDROXYCHLOROQUINE PHOSPHATE [Concomitant]
  5. ASPIRIN [Concomitant]
  6. FOLIC ACID [Concomitant]
  7. MULTIVITAMIN [Concomitant]

REACTIONS (3)
  - BALANCE DISORDER [None]
  - DIZZINESS [None]
  - RASH [None]
